FAERS Safety Report 12294309 (Version 1)
Quarter: 2016Q2

REPORT INFORMATION
  Report Type: Spontaneous
  Country: GB (occurrence: GB)
  Receive Date: 20160422
  Receipt Date: 20160422
  Transmission Date: 20160815
  Serious: Yes (Life-Threatening)
  Sender: FDA-Public Use
  Company Number: GB-SUN PHARMACEUTICAL INDUSTRIES LTD-2016RR-115174

PATIENT
  Age: 44 Year
  Sex: Male
  Weight: 84 kg

DRUGS (5)
  1. CLONAZEPAM. [Concomitant]
     Active Substance: CLONAZEPAM
     Indication: VERBAL ABUSE
     Route: 065
     Dates: start: 20151017
  2. EPILIM [Concomitant]
     Active Substance: VALPROATE SODIUM
     Indication: PRODUCT USED FOR UNKNOWN INDICATION
     Route: 065
     Dates: start: 20160401
  3. PROMETHAZINE [Suspect]
     Active Substance: PROMETHAZINE\PROMETHAZINE HYDROCHLORIDE
     Indication: AGITATION
     Dosage: ONCE AT 08:00 AND ONCE AT 22:00
     Route: 048
     Dates: start: 20151017
  4. FLUCLOXACILLIN [Suspect]
     Active Substance: FLUCLOXACILLIN
     Indication: LOCALISED INFECTION
     Route: 065
     Dates: start: 20160324
  5. OLANZAPINE. [Concomitant]
     Active Substance: OLANZAPINE
     Indication: VERBAL ABUSE
     Route: 065
     Dates: start: 20160317

REACTIONS (7)
  - Oedema peripheral [Not Recovered/Not Resolved]
  - Aggression [Unknown]
  - Medication error [Unknown]
  - Drug interaction [Not Recovered/Not Resolved]
  - Reaction to drug excipients [Unknown]
  - Agitation [Unknown]
  - Skin infection [Not Recovered/Not Resolved]

NARRATIVE: CASE EVENT DATE: 20160324
